FAERS Safety Report 9926644 (Version 1)
Quarter: 2014Q1

REPORT INFORMATION
  Report Type: Spontaneous
  Country: US (occurrence: US)
  Receive Date: 20140226
  Receipt Date: 20140226
  Transmission Date: 20141002
  Serious: No
  Sender: FDA-Public Use
  Company Number: US-AMGEN-USASP2013076232

PATIENT
  Age: 46 Year
  Sex: Female
  Weight: 83.45 kg

DRUGS (9)
  1. ENBREL [Suspect]
     Indication: PRODUCT USED FOR UNKNOWN INDICATION
     Dosage: 50 MG (1 ML), ONCE A WEEK
     Route: 058
  2. FOLIC ACID [Concomitant]
     Dosage: UNK
  3. FIBER [Concomitant]
     Dosage: 0.52 GM
  4. LACTAID [Concomitant]
     Dosage: 3000 UNIT, UNK
  5. HYOSCYAMINE [Concomitant]
     Dosage: 0.125 MG, UNK
  6. ZIAC                               /00821801/ [Concomitant]
     Dosage: 2.5/6.25
  7. SYNTHROID [Concomitant]
     Dosage: 88 MCG, UNK
  8. ATIVAN [Concomitant]
     Dosage: 1 MG, UNK
  9. METHOTREXATE [Concomitant]
     Dosage: 2.5 MG, UNK

REACTIONS (1)
  - Injection site erythema [Unknown]
